FAERS Safety Report 6211682-6 (Version None)
Quarter: 2009Q2

REPORT INFORMATION
  Report Type: 
  Country: None (occurrence: None)
  Receive Date: 20090602
  Receipt Date: 20090522
  Transmission Date: 20091009
  Serious: Yes (Other)
  Sender: FDA-Public Use
  Company Number: B0566664A

PATIENT
  Sex: Female

DRUGS (4)
  1. RELENZA [Suspect]
     Indication: INFLUENZA
     Dosage: 10MG TWICE PER DAY
     Route: 055
     Dates: start: 20090316, end: 20090320
  2. TELGIN G [Concomitant]
     Indication: INFLUENZA
     Dosage: .99G PER DAY
     Route: 048
     Dates: start: 20090316, end: 20090320
  3. ASVERIN [Concomitant]
     Indication: INFLUENZA
     Dosage: 2.4G PER DAY
     Route: 048
     Dates: start: 20090316, end: 20090320
  4. MUCODYNE [Concomitant]
     Indication: INFLUENZA
     Dosage: .75G PER DAY
     Route: 048
     Dates: start: 20090316, end: 20090320

REACTIONS (4)
  - ABNORMAL BEHAVIOUR [None]
  - AGITATION [None]
  - HYPERHIDROSIS [None]
  - RESTLESSNESS [None]
